FAERS Safety Report 7679339-2 (Version None)
Quarter: 2011Q3

REPORT INFORMATION
  Report Type: 
  Country: None (occurrence: None)
  Receive Date: 20110812
  Receipt Date: 20110804
  Transmission Date: 20111222
  Serious: Yes (Hospitalization, Other)
  Sender: FDA-Public Use
  Company Number: JP-ASTELLAS-2011JP003820

PATIENT
  Sex: Female
  Weight: 40 kg

DRUGS (10)
  1. TACROLIMUS [Suspect]
     Dosage: 4 MG, UNKNOWN/D
     Route: 048
     Dates: start: 20110512, end: 20110608
  2. TACROLIMUS [Suspect]
     Dosage: 4 MG, UNKNOWN/D
     Route: 048
     Dates: start: 20110412, end: 20110427
  3. TACROLIMUS [Suspect]
     Dosage: 4 MG, UNKNOWN/D
     Route: 048
     Dates: start: 20110616
  4. PROGRAF [Suspect]
     Dosage: 1.6 MG, UNKNOWN/D
     Route: 065
     Dates: end: 20110317
  5. SULFAMETHOXAZOLE [Concomitant]
     Indication: INFECTION PROPHYLAXIS
     Dosage: 2 UNK, UNK
     Route: 048
     Dates: start: 20110428
  6. TACROLIMUS [Suspect]
     Dosage: 5 MG, UNKNOWN/D
     Route: 048
     Dates: start: 20110428, end: 20110511
  7. TACROLIMUS [Suspect]
     Dosage: 3 MG, UNKNOWN/D
     Route: 048
     Dates: start: 20110318, end: 20110411
  8. TACROLIMUS [Suspect]
     Dosage: 5 MG, UNKNOWN/D
     Dates: start: 20110609, end: 20110615
  9. ASPARA K [Concomitant]
     Indication: HYPOKALAEMIA
     Dosage: 1 DF, BID
     Route: 048
     Dates: start: 20110331
  10. MUCOSTA [Concomitant]
     Indication: GASTROINTESTINAL DISORDER
     Dosage: 100 MG, TID
     Route: 048
     Dates: start: 20110317

REACTIONS (5)
  - PNEUMONIA [None]
  - DRUG INEFFECTIVE [None]
  - OEDEMA [None]
  - GRAFT VERSUS HOST DISEASE [None]
  - HERPES ZOSTER [None]
